APPROVED DRUG PRODUCT: SILDENAFIL CITRATE
Active Ingredient: SILDENAFIL CITRATE
Strength: EQ 100MG BASE
Dosage Form/Route: TABLET;ORAL
Application: A213032 | Product #003 | TE Code: AB
Applicant: SUNSHINE LAKE PHARMA CO LTD
Approved: Jun 11, 2020 | RLD: No | RS: No | Type: RX